FAERS Safety Report 6785878-9 (Version None)
Quarter: 2010Q2

REPORT INFORMATION
  Report Type: 
  Country: None (occurrence: None)
  Receive Date: 20100623
  Receipt Date: 20100617
  Transmission Date: 20101027
  Serious: Yes (Hospitalization)
  Sender: FDA-Public Use
  Company Number: JP-PFIZER INC-2010074516

PATIENT
  Age: 13 Year
  Sex: Male

DRUGS (14)
  1. SOLU-CORTEF [Suspect]
     Indication: ASTHMA
     Dosage: 200 MG, UNK
     Route: 041
     Dates: start: 20100611, end: 20100611
  2. HOKUNALIN [Concomitant]
     Indication: ASTHMA
     Dosage: 2 MG, UNK
     Route: 062
     Dates: start: 20100610, end: 20100611
  3. SINGULAIR ^DIECKMANN^ [Concomitant]
     Indication: ASTHMA
     Dosage: 5 MG, UNK
     Route: 048
     Dates: start: 20090122
  4. NIPOLAZIN [Concomitant]
     Indication: ASTHMA
     Dosage: 3 MG, 3X/DAY
     Route: 048
     Dates: start: 20100610, end: 20100611
  5. NIPOLAZIN [Concomitant]
     Indication: BRONCHITIS
  6. FLUTIDE [Concomitant]
     Indication: ASTHMA
     Dosage: 100 UG, 2X/DAY
     Route: 055
     Dates: start: 20090122
  7. MUCODYNE [Concomitant]
     Indication: INFECTION
     Dosage: 250 MG, 3X/DAY
     Route: 048
     Dates: start: 20100610, end: 20100611
  8. MUCODYNE [Concomitant]
     Indication: BRONCHITIS
  9. KLARICID [Concomitant]
     Indication: PRODUCTIVE COUGH
     Dosage: 200 MG, 2X/DAY
     Route: 048
     Dates: start: 20100610, end: 20100611
  10. KLARICID [Concomitant]
     Indication: BRONCHITIS
  11. MEPTIN [Concomitant]
     Indication: ASTHMA
     Dosage: 10 UG, 2X/DAY
     Route: 048
     Dates: start: 20090629
  12. SOLITA-T1 INJECTION [Concomitant]
     Indication: DEHYDRATION
     Dosage: 200 ML, 1X/DAY
     Route: 042
     Dates: start: 20100611, end: 20100611
  13. VENTOLIN [Concomitant]
     Indication: ASTHMA
     Dosage: UNK
     Route: 048
     Dates: start: 20100611, end: 20100611
  14. BISOLVON [Concomitant]
     Indication: ASTHMA
     Dosage: UNK
     Route: 048
     Dates: start: 20100611, end: 20100611

REACTIONS (6)
  - ANAPHYLACTIC SHOCK [None]
  - COLD SWEAT [None]
  - DYSPNOEA [None]
  - OXYGEN SATURATION DECREASED [None]
  - PALLOR [None]
  - SPEECH DISORDER [None]
